FAERS Safety Report 11619216 (Version 2)
Quarter: 2015Q4

REPORT INFORMATION
  Report Type: Report from Study
  Country: DE (occurrence: DE)
  Receive Date: 20151012
  Receipt Date: 20151203
  Transmission Date: 20160304
  Serious: No
  Sender: FDA-Public Use
  Company Number: DE-JNJFOC-20151003476

PATIENT
  Age: 73 Year
  Sex: Male
  Weight: 78 kg

DRUGS (2)
  1. OLYSIO [Suspect]
     Active Substance: SIMEPREVIR
     Indication: CHRONIC HEPATITIS C
     Route: 048
     Dates: start: 20150127
  2. SOVALDI [Suspect]
     Active Substance: SOFOSBUVIR
     Indication: CHRONIC HEPATITIS C
     Route: 048
     Dates: start: 20150127

REACTIONS (1)
  - Melaena [Recovered/Resolved]

NARRATIVE: CASE EVENT DATE: 20150226
